FAERS Safety Report 9888221 (Version 2)
Quarter: 2014Q1

REPORT INFORMATION
  Report Type: Report from Study
  Country: US (occurrence: US)
  Receive Date: 20140211
  Receipt Date: 20140331
  Transmission Date: 20141002
  Serious: No
  Sender: FDA-Public Use
  Company Number: US-ALEXION-A201400293

PATIENT
  Sex: 0

DRUGS (10)
  1. SOLIRIS [Suspect]
     Indication: HAEMOLYTIC URAEMIC SYNDROME
     Dosage: 1200 MG, Q2W
     Route: 042
     Dates: start: 20130906
  2. SOLIRIS [Suspect]
     Dosage: 1200 MG, EVERY 28 DAYS
     Route: 042
     Dates: start: 20140404
  3. LASIX                              /00032601/ [Concomitant]
     Indication: DIURETIC THERAPY
     Dosage: 60 MG, ONCE A
     Dates: start: 20131025
  4. PRILOSEC                           /00661201/ [Concomitant]
     Dosage: UNK
     Dates: start: 20131028
  5. VITAMIN C                          /00008001/ [Concomitant]
     Dosage: UNK
     Dates: start: 20131028
  6. VITAMIN D                          /00107901/ [Concomitant]
     Dosage: UNK, QW
     Dates: start: 20131028
  7. FLOVENT [Concomitant]
     Dosage: 1 DF, BID
     Dates: start: 20131029, end: 20140117
  8. LABETALOL [Concomitant]
     Indication: HYPERTENSION
     Dosage: UNK
     Dates: start: 20131029, end: 20140123
  9. HYDRALAZINE [Concomitant]
     Indication: HYPERTENSION
     Dosage: 10 MG, TID
     Dates: start: 20131202
  10. LISINOPRIL [Concomitant]
     Indication: HYPERTENSION
     Dosage: 10 MG, QD
     Dates: start: 20131202

REACTIONS (4)
  - Pain [Not Recovered/Not Resolved]
  - Vomiting [Recovered/Resolved]
  - Fatigue [Recovered/Resolved]
  - Inappropriate schedule of drug administration [Unknown]
